FAERS Safety Report 5672636-1 (Version None)
Quarter: 2008Q1

REPORT INFORMATION
  Report Type: 
  Country: None (occurrence: None)
  Receive Date: 20080319
  Receipt Date: 20080314
  Transmission Date: 20080703
  Serious: Yes (Death, Hospitalization, Other)
  Sender: FDA-Public Use
  Company Number: PHEH2008US02197

PATIENT
  Age: 90 Year
  Sex: Male

DRUGS (9)
  1. EXJADE [Suspect]
     Indication: MYELODYSPLASTIC SYNDROME
     Dosage: 1250 MG, QD
     Route: 048
     Dates: start: 20070601
  2. BLOOD TRANSFUSION, AUXILIARY PRODUCTS [Concomitant]
     Dosage: UNK, QW3
  3. DAYPRO [Concomitant]
     Dosage: 600 MG, QD
     Route: 048
  4. DIGOXIN [Concomitant]
     Dosage: 0.125 MG, QD
     Route: 048
  5. PREVACID [Concomitant]
     Dosage: 30 MG, QD
     Route: 048
  6. PAXIL [Concomitant]
     Dosage: 10 MG, QD
     Route: 048
  7. COLACE [Concomitant]
     Dosage: 2 TABS, QHS
  8. LORTAB [Concomitant]
     Dosage: UNK, PRN
  9. REVLIMID [Concomitant]
     Dosage: 5 MG, QD
     Route: 048

REACTIONS (22)
  - ARTHRALGIA [None]
  - ASPIRATION [None]
  - ASTHENIA [None]
  - ATRIOVENTRICULAR BLOCK FIRST DEGREE [None]
  - BLOOD PRESSURE DECREASED [None]
  - BLOOD UREA INCREASED [None]
  - CARDIAC ARREST [None]
  - ENDOTRACHEAL INTUBATION [None]
  - ENURESIS [None]
  - FALL [None]
  - FRACTURE REDUCTION [None]
  - HYPERTENSION [None]
  - HYPOAESTHESIA [None]
  - INCREASED BRONCHIAL SECRETION [None]
  - MEMORY IMPAIRMENT [None]
  - MULTI-ORGAN FAILURE [None]
  - MULTIPLE FRACTURES [None]
  - PLATELET COUNT DECREASED [None]
  - PNEUMONIA [None]
  - SEPSIS [None]
  - SINUS TACHYCARDIA [None]
  - VOMITING [None]
